FAERS Safety Report 14403907 (Version 2)
Quarter: 2018Q2

REPORT INFORMATION
  Report Type: Spontaneous
  Country: SE (occurrence: SE)
  Receive Date: 20180117
  Receipt Date: 20180406
  Transmission Date: 20180711
  Serious: Yes (Hospitalization, Congenital Anomaly)
  Sender: FDA-Public Use
  Company Number: SE-TEVA-2018-SE-843490

PATIENT
  Sex: Male

DRUGS (5)
  1. OLANZAPIN ACTAVIS [Suspect]
     Active Substance: OLANZAPINE
     Route: 065
  2. CLOPIXOL DEPOT 200 MG/ML INJEKTIONSV?TSKA, L?SNING [Suspect]
     Active Substance: ZUCLOPENTHIXOL DECANOATE
     Route: 065
  3. ATARAX [Suspect]
     Active Substance: HYDROXYZINE HYDROCHLORIDE
     Route: 065
  4. FLUOXETIN RATIOPHARM 10 MG L?SLIG TABLETT [Suspect]
     Active Substance: FLUOXETINE HYDROCHLORIDE
     Route: 065
  5. AKINETON [Suspect]
     Active Substance: BIPERIDEN HYDROCHLORIDE
     Route: 065

REACTIONS (6)
  - Rheumatic disorder [Not Recovered/Not Resolved]
  - Rash pruritic [Not Recovered/Not Resolved]
  - Fatigue [Not Recovered/Not Resolved]
  - Finger deformity [Not Recovered/Not Resolved]
  - Psoriasis [Not Recovered/Not Resolved]
  - Decreased appetite [Not Recovered/Not Resolved]
